FAERS Safety Report 13211811 (Version 1)
Quarter: 2017Q1

REPORT INFORMATION
  Report Type: Spontaneous
  Country: US (occurrence: US)
  Receive Date: 20170210
  Receipt Date: 20170210
  Transmission Date: 20170428
  Serious: Yes (Other)
  Sender: FDA-Public Use
  Company Number: US-BAYER-2017-026983

PATIENT
  Sex: Female

DRUGS (1)
  1. SKYLA [Suspect]
     Active Substance: LEVONORGESTREL
     Dosage: 13.5 MCG/24HR, CONT
     Route: 015

REACTIONS (2)
  - Drug ineffective [None]
  - Ectopic pregnancy with contraceptive device [None]
